FAERS Safety Report 8767161 (Version 2)
Quarter: 2012Q4

REPORT INFORMATION
  Report Type: 
  Country: CA (occurrence: CA)
  Receive Date: 20120904
  Receipt Date: 20120912
  Transmission Date: 20130627
  Serious: Yes (Other)
  Sender: FDA-Public Use
  Company Number: CA-JNJFOC-20120814802

PATIENT

DRUGS (32)
  1. DOXORUBICIN [Suspect]
     Indication: ACUTE LYMPHOCYTIC LEUKAEMIA
     Dosage: on day 1 (intensification therapy for 30 weeks (cycle 1-7- 21 days/cylce)
     Route: 042
  2. DOXORUBICIN [Suspect]
     Indication: ACUTE LYMPHOCYTIC LEUKAEMIA
     Dosage: on day 1 (central nervous system therapy for 3 weeks)
     Route: 042
  3. DOXORUBICIN [Suspect]
     Indication: ACUTE LYMPHOCYTIC LEUKAEMIA
     Dosage: on days 0 and 1 (induction therapy for 4 weeks)
     Route: 042
  4. DOXORUBICIN [Suspect]
     Indication: ACUTE LYMPHOCYTIC LEUKAEMIA
     Dosage: on days 0 and 1 (induction therapy for 4 weeks)
     Route: 042
  5. DOXORUBICIN [Suspect]
     Indication: ACUTE LYMPHOCYTIC LEUKAEMIA
     Dosage: on day 1 (intensification therapy for 30 weeks (cycle 1-7- 21 days/cylce)
     Route: 042
  6. DOXORUBICIN [Suspect]
     Indication: ACUTE LYMPHOCYTIC LEUKAEMIA
     Dosage: on day 1 (central nervous system therapy for 3 weeks)
     Route: 042
  7. PREDNISONE [Suspect]
     Indication: ACUTE LYMPHOCYTIC LEUKAEMIA
     Dosage: on days 0-28 (induction therapy for 4 weeks)
     Route: 048
  8. VINCRISTINE [Suspect]
     Indication: ACUTE LYMPHOCYTIC LEUKAEMIA
     Dosage: on days 0, 7, 14, 21 (induction therapy for 4 weeks)
     Route: 042
  9. VINCRISTINE [Suspect]
     Indication: ACUTE LYMPHOCYTIC LEUKAEMIA
     Dosage: on day 1 (central nervous system therapy for 3 weeks)
     Route: 042
  10. VINCRISTINE [Suspect]
     Indication: ACUTE LYMPHOCYTIC LEUKAEMIA
     Dosage: on day 1 (intensification therapy for 30 weeks, 10 cycles - 21 days/cycle)
     Route: 042
  11. METHOTREXATE [Suspect]
     Indication: ACUTE LYMPHOCYTIC LEUKAEMIA
     Dosage: 4 g/m2 IV over 1 hr on day 2 with leucovorin rescue  during induction phase for 4 weeks
     Route: 042
  12. ASPARAGINASE [Suspect]
     Indication: ACUTE LYMPHOCYTIC LEUKAEMIA
     Dosage: 25000 IU/m2 on day 4 (induction therapy for 4 weeks)
     Route: 030
  13. ASPARAGINASE [Suspect]
     Indication: ACUTE LYMPHOCYTIC LEUKAEMIA
     Dosage: 12500 IU/m2 on days 1, 8 and 15 (intensification theray for 30 weeks, 10 cycles - 21 days/cycle)
     Route: 030
  14. 6-MERCAPTOPURINE [Suspect]
     Indication: ACUTE LYMPHOCYTIC LEUKAEMIA
     Dosage: every night at bedtime;day 1-14 (intensification therapy for 30 weeks, 10 cycles - 21 days/cycle)
     Route: 048
  15. 6-MERCAPTOPURINE [Suspect]
     Indication: ACUTE LYMPHOCYTIC LEUKAEMIA
     Dosage: every night at bedtime; from day 1-14 (central nervous system therapy for 3 weeks)
     Route: 048
  16. RADIATION THERAPY [Suspect]
     Indication: CHROMOSOME ANALYSIS ABNORMAL
     Dosage: 1200 cGy over 8 days (central nervous system therapy for 3 weeks)
     Route: 065
  17. RADIATION THERAPY [Suspect]
     Indication: ACUTE LYMPHOCYTIC LEUKAEMIA
     Dosage: 1200 cGy over 8 days (central nervous system therapy for 3 weeks)
     Route: 065
  18. METHOTREXATE W/CYTARABINE/HYDROCORTISONE [Suspect]
     Indication: ACUTE LYMPHOCYTIC LEUKAEMIA
     Dosage: 12/40/15 mg, days 1, 4, 8, 11; CNS therapy for 3 weeks
     Route: 037
  19. METHOTREXATE W/CYTARABINE/HYDROCORTISONE [Suspect]
     Indication: ACUTE LYMPHOCYTIC LEUKAEMIA
     Dosage: 12/40/15 mg, on days 0 and 14 during induction phase
     Route: 037
  20. METHOTREXATE W/CYTARABINE/HYDROCORTISONE [Suspect]
     Indication: ACUTE LYMPHOCYTIC LEUKAEMIA
     Dosage: 40/12/15 mg, every 18 weeks during intensification phase
     Route: 037
  21. DEXAMETHASONE [Suspect]
     Indication: ACUTE LYMPHOCYTIC LEUKAEMIA
     Dosage: from days 1-5 during intensification therapy for 30 weeks (10 cylces-21 days/cycle)
     Route: 048
  22. LEUCOVORIN [Suspect]
     Indication: CHROMOSOME ANALYSIS ABNORMAL
     Dosage: leucovorin rescue administered with methotrexate on day 2 druing induction phase for 4 weks
     Route: 065
  23. LEUCOVORIN [Suspect]
     Indication: ACUTE LYMPHOCYTIC LEUKAEMIA
     Dosage: leucovorin rescue administered with methotrexate on day 2 druing induction phase for 4 weks
     Route: 065
  24. IMATINIB [Suspect]
     Indication: ACUTE LYMPHOCYTIC LEUKAEMIA
     Dosage: on days 2-14 (induction therapy for 4 weeks)
     Route: 048
  25. IMATINIB [Suspect]
     Indication: ACUTE LYMPHOCYTIC LEUKAEMIA
     Dosage: on day 1-14 (central nervous system therapy for 3 weeks)
     Route: 048
  26. IMATINIB [Suspect]
     Indication: ACUTE LYMPHOCYTIC LEUKAEMIA
     Dosage: on day 1-14 (intensification therapy for 30 weeks, 10 cycles - 21 days/cycle)
     Route: 048
  27. FLUCONAZOLE [Concomitant]
     Indication: ANTIFUNGAL PROPHYLAXIS
     Dosage: during induction
     Route: 065
  28. TRIMETHOPRIM AND SULFAMETHOXAZOLE [Concomitant]
     Indication: ANTIFUNGAL PROPHYLAXIS
     Dosage: during induction
     Route: 065
  29. PENTAMIDINE [Concomitant]
     Indication: ANTIFUNGAL PROPHYLAXIS
     Dosage: during induction
     Route: 055
  30. CALCIUM AND VITAMIN D [Concomitant]
     Indication: PROPHYLAXIS
     Dosage: during induction
     Route: 065
  31. ALENDRONATE [Concomitant]
     Indication: PROPHYLAXIS
     Dosage: during induction
     Route: 065
  32. RISEDRONATE [Concomitant]
     Indication: PROPHYLAXIS
     Dosage: during induction
     Route: 065

REACTIONS (2)
  - Pancreatitis [Unknown]
  - Off label use [Unknown]
